FAERS Safety Report 7834955-X (Version None)
Quarter: 2011Q4

REPORT INFORMATION
  Report Type: 
  Country: None (occurrence: None)
  Receive Date: 20111024
  Receipt Date: 20111012
  Transmission Date: 20120403
  Serious: Yes (Hospitalization)
  Sender: FDA-Public Use
  Company Number: ES-JNJFOC-20111005977

PATIENT
  Age: 69 Year
  Sex: Male

DRUGS (16)
  1. DOCETAXEL [Concomitant]
     Indication: PROSTATE CANCER
     Route: 065
     Dates: start: 20100701, end: 20101101
  2. MAYGACE [Concomitant]
     Indication: PROSTATE CANCER
     Route: 065
     Dates: start: 20101101, end: 20101201
  3. DURAGESIC-100 [Suspect]
     Route: 062
     Dates: start: 20110101
  4. DURAGESIC-100 [Suspect]
     Route: 062
     Dates: start: 20100601
  5. DURAGESIC-100 [Suspect]
     Route: 062
     Dates: start: 20090701
  6. PREDNISONE [Concomitant]
     Indication: PROSTATE CANCER
     Route: 065
     Dates: start: 20100601, end: 20100701
  7. GABAPENTIN [Concomitant]
     Indication: PROSTATE CANCER
     Route: 065
     Dates: start: 20110601
  8. ARANESP [Concomitant]
     Indication: PROSTATE CANCER
     Route: 065
     Dates: start: 20101101, end: 20101201
  9. DURAGESIC-100 [Suspect]
     Indication: BONE PAIN
     Route: 062
     Dates: start: 20110601
  10. VINORELBINE [Concomitant]
     Indication: PROSTATE CANCER
     Route: 065
     Dates: start: 20100601, end: 20100701
  11. CORTICOSTEROID [Concomitant]
     Indication: PROSTATE CANCER
     Route: 065
     Dates: start: 20110601
  12. DURAGESIC-100 [Suspect]
     Route: 062
     Dates: start: 20101101, end: 20101201
  13. DURAGESIC-100 [Suspect]
     Route: 062
     Dates: start: 20110601, end: 20110601
  14. TRIPTORELIN ACETATE [Concomitant]
     Indication: PROSTATE CANCER
     Route: 065
     Dates: start: 20090701, end: 20100601
  15. FLUTAMIDE [Concomitant]
     Indication: PROSTATE CANCER
     Route: 065
     Dates: start: 20090701, end: 20100601
  16. BOREA [Concomitant]
     Indication: PROSTATE CANCER
     Route: 065
     Dates: start: 20110401

REACTIONS (8)
  - INADEQUATE ANALGESIA [None]
  - TOXICITY TO VARIOUS AGENTS [None]
  - ASTHENIA [None]
  - METASTASES TO BONE [None]
  - DECREASED APPETITE [None]
  - TREATMENT NONCOMPLIANCE [None]
  - PROSTATIC SPECIFIC ANTIGEN INCREASED [None]
  - PAIN [None]
